FAERS Safety Report 8375625-1 (Version None)
Quarter: 2012Q1

REPORT INFORMATION
  Report Type: 
  Country: None (occurrence: None)
  Receive Date: 20120323
  Receipt Date: 20110128
  Transmission Date: 20120608
  Serious: Yes (Other)
  Sender: FDA-Public Use
  Company Number: 163-21880-11020372

PATIENT
  Age: 68 Year
  Sex: Female
  Weight: 90.9 kg

DRUGS (6)
  1. LIPITOR [Concomitant]
  2. NORVASC [Concomitant]
  3. PREVACID [Concomitant]
  4. AMARYL [Concomitant]
  5. ASPIRIN [Concomitant]
  6. REVLIMID [Suspect]
     Indication: MULTIPLE MYELOMA
     Dosage: 25 MG, PO
     Route: 048
     Dates: start: 20091208

REACTIONS (1)
  - RASH [None]
